FAERS Safety Report 8756786 (Version 2)
Quarter: 2012Q4

REPORT INFORMATION
  Report Type: 
  Country: US (occurrence: US)
  Receive Date: 20120822
  Receipt Date: 20121017
  Transmission Date: 20130627
  Serious: Yes (Other)
  Sender: FDA-Public Use
  Company Number: US-ELI_LILLY_AND_COMPANY-US201207009202

PATIENT
  Sex: Female
  Weight: 69.84 kg

DRUGS (2)
  1. CYMBALTA [Suspect]
     Indication: PAIN
     Dosage: 20 mg, qd
     Dates: start: 20120410, end: 20120424
  2. ORAL CONTRACEPTIVE NOS [Concomitant]

REACTIONS (3)
  - Ocular icterus [Recovered/Resolved]
  - Nausea [Recovered/Resolved]
  - Headache [Recovered/Resolved]
